FAERS Safety Report 13349009 (Version 1)
Quarter: 2017Q1

REPORT INFORMATION
  Report Type: Spontaneous
  Country: IT (occurrence: IT)
  Receive Date: 20170320
  Receipt Date: 20170320
  Transmission Date: 20170428
  Serious: Yes (Death, Life-Threatening, Hospitalization, Other)
  Sender: FDA-Public Use
  Company Number: IT-SUN PHARMACEUTICAL INDUSTRIES LTD-2017R1-136130

PATIENT
  Age: 54 Year
  Sex: Female

DRUGS (1)
  1. PARACETAMOL [Suspect]
     Active Substance: ACETAMINOPHEN
     Indication: PYREXIA
     Dosage: UNK
     Route: 065

REACTIONS (11)
  - Bradycardia [Unknown]
  - Accidental poisoning [Fatal]
  - Red blood cell count decreased [Unknown]
  - Renal failure [Unknown]
  - Toxicity to various agents [Fatal]
  - Metabolic acidosis [Unknown]
  - Platelet count decreased [Unknown]
  - Haemoglobin decreased [Unknown]
  - Acute hepatic failure [Unknown]
  - Encephalopathy [Unknown]
  - Self-medication [Unknown]
